FAERS Safety Report 6583061-3 (Version None)
Quarter: 2010Q1

REPORT INFORMATION
  Report Type: 
  Country: None (occurrence: None)
  Receive Date: 20100216
  Receipt Date: 20100209
  Transmission Date: 20100710
  Serious: Yes (Death)
  Sender: FDA-Public Use
  Company Number: US-ROCHE-681348

PATIENT
  Sex: Female

DRUGS (2)
  1. PEG-INTERFERON A-2A (RO 25-8310) [Suspect]
     Indication: HEPATITIS C
     Dosage: STRENGTH: 180 UG/0.5 ML
     Route: 065
     Dates: start: 20090908, end: 20091215
  2. RIBAVIRIN [Suspect]
     Indication: HEPATITIS C
     Route: 065
     Dates: start: 20090908, end: 20091215

REACTIONS (2)
  - CYSTIC FIBROSIS [None]
  - RESPIRATORY FAILURE [None]
